FAERS Safety Report 18687485 (Version 1)
Quarter: 2020Q4

REPORT INFORMATION
  Report Type: Other
  Country: TW (occurrence: TW)
  Receive Date: 20201231
  Receipt Date: 20201231
  Transmission Date: 20210114
  Serious: Yes (Hospitalization)
  Sender: FDA-Public Use
  Company Number: TW-ROCHE-2737201

PATIENT
  Age: 51 Year
  Sex: Female
  Weight: 52 kg

DRUGS (2)
  1. HERCEPTIN [Suspect]
     Active Substance: TRASTUZUMAB
     Indication: BREAST CANCER
     Route: 058
     Dates: start: 20201116, end: 20201215
  2. PERJETA [Suspect]
     Active Substance: PERTUZUMAB
     Indication: BREAST CANCER
     Route: 042
     Dates: start: 20201116, end: 20201215

REACTIONS (2)
  - Chest pain [Recovering/Resolving]
  - Respiratory distress [Recovering/Resolving]

NARRATIVE: CASE EVENT DATE: 20201215
